FAERS Safety Report 9322699 (Version 3)
Quarter: 2014Q1

REPORT INFORMATION
  Report Type: Spontaneous
  Country: US (occurrence: US)
  Receive Date: 20130601
  Receipt Date: 20140109
  Transmission Date: 20141002
  Serious: Yes (Hospitalization, Other)
  Sender: FDA-Public Use
  Company Number: US-ASTRAZENECA-2013SE38539

PATIENT
  Age: 71 Year
  Sex: Female
  Weight: 72.6 kg

DRUGS (11)
  1. NEXIUM [Suspect]
     Indication: GASTROOESOPHAGEAL REFLUX DISEASE
     Route: 048
     Dates: start: 200303, end: 201201
  2. NEXIUM [Suspect]
     Indication: GASTROOESOPHAGEAL REFLUX DISEASE
     Route: 048
     Dates: start: 20071219
  3. TUMS [Concomitant]
     Indication: GASTROOESOPHAGEAL REFLUX DISEASE
     Dosage: OTC
     Dates: start: 200303
  4. MYLANTA [Concomitant]
     Indication: ABDOMINAL PAIN UPPER
     Dosage: AS NEEDED OTC
  5. ZOLPIDEM [Concomitant]
  6. FUROSEMIDE [Concomitant]
     Indication: CARDIAC DISORDER
  7. LEVOTHYROXINE [Concomitant]
     Indication: THYROID DISORDER
  8. SIMVASTATIN [Concomitant]
     Indication: BLOOD CHOLESTEROL
  9. TRANDOLAPRIL [Concomitant]
     Indication: BLOOD PRESSURE
  10. AMBIEN [Concomitant]
     Indication: INSOMNIA
  11. ACTONEL [Concomitant]

REACTIONS (10)
  - Femur fracture [Unknown]
  - Hip fracture [Unknown]
  - Fall [Unknown]
  - Osteoporosis [Unknown]
  - Bone disorder [Unknown]
  - Foot fracture [Unknown]
  - Spinal compression fracture [Unknown]
  - Osteopenia [Unknown]
  - Arthritis [Unknown]
  - Humerus fracture [Unknown]
